FAERS Safety Report 16764873 (Version 2)
Quarter: 2025Q3

REPORT INFORMATION
  Report Type: Spontaneous
  Country: US (occurrence: US)
  Receive Date: 20190903
  Receipt Date: 20250709
  Transmission Date: 20251020
  Serious: Yes (Hospitalization, Other)
  Sender: AUROBINDO
  Company Number: US-AUROBINDO-AUR-APL-2019-055871

PATIENT
  Age: 82 Year
  Sex: Male

DRUGS (2)
  1. GABAPENTIN [Suspect]
     Active Substance: GABAPENTIN
     Indication: Chronic kidney disease
     Dosage: 100 MILLIGRAM, 3 TIMES A DAY
     Route: 065
  2. GABAPENTIN [Suspect]
     Active Substance: GABAPENTIN
     Dosage: 400 MILLIGRAM, 3 TIMES A DAY
     Route: 065

REACTIONS (5)
  - Dysphagia [Recovered/Resolved]
  - Chorea [Recovered/Resolved]
  - Dysarthria [Recovered/Resolved]
  - Renal impairment [Recovered/Resolved]
  - Myoclonus [Recovered/Resolved]
